FAERS Safety Report 14954514 (Version 1)
Quarter: 2018Q2

REPORT INFORMATION
  Report Type: Other
  Country: NO (occurrence: NO)
  Receive Date: 20180530
  Receipt Date: 20180530
  Transmission Date: 20180711
  Serious: Yes (Death)
  Sender: FDA-Public Use
  Company Number: NO-BIODELIVERY SCIENCES INTERNATIONAL-2016BDSI0080

PATIENT
  Age: 21 Year
  Sex: Female

DRUGS (9)
  1. FENTANYL UNSPECIFIED [Suspect]
     Active Substance: FENTANYL
     Indication: PRODUCT USED FOR UNKNOWN INDICATION
  2. OXAZEPAM. [Suspect]
     Active Substance: OXAZEPAM
  3. METHAMPHETAMINE [Suspect]
     Active Substance: METHAMPHETAMINE
  4. AMPHETAMINE [Suspect]
     Active Substance: AMPHETAMINE
  5. MIANSERIN [Suspect]
     Active Substance: MIANSERIN
  6. PARACETAMOL [Suspect]
     Active Substance: ACETAMINOPHEN
  7. 7-AMINO-FLUNITRAZEPAM [Suspect]
     Active Substance: 7-AMINOFLUNITRAZEPAM
  8. CODEINE [Suspect]
     Active Substance: CODEINE
  9. DIAZEPAM. [Suspect]
     Active Substance: DIAZEPAM

REACTIONS (1)
  - Toxicity to various agents [Fatal]
